FAERS Safety Report 6656910-8 (Version None)
Quarter: 2010Q1

REPORT INFORMATION
  Report Type: 
  Country: None (occurrence: None)
  Receive Date: 20100329
  Receipt Date: 20100329
  Transmission Date: 20100710
  Serious: Yes (Hospitalization)
  Sender: FDA-Public Use
  Company Number: None

PATIENT
  Sex: Male
  Weight: 68.8 kg

DRUGS (2)
  1. TARCEVA [Suspect]
     Dosage: 1200 MG
  2. GEMCITABINE HCL [Suspect]
     Dosage: 3640 MG

REACTIONS (4)
  - INTERVERTEBRAL DISC DEGENERATION [None]
  - MUSCULOSKELETAL STIFFNESS [None]
  - NECK PAIN [None]
  - SPINAL COLUMN STENOSIS [None]
